FAERS Safety Report 5917347-X (Version None)
Quarter: 2008Q4

REPORT INFORMATION
  Report Type: 
  Country: None (occurrence: None)
  Receive Date: 20081014
  Receipt Date: 20081006
  Transmission Date: 20090506
  Serious: Yes (Death, Hospitalization, Other)
  Sender: FDA-Public Use
  Company Number: US-ELI_LILLY_AND_COMPANY-US200810001252

PATIENT
  Sex: Male

DRUGS (1)
  1. FORTEO [Suspect]

REACTIONS (9)
  - ABNORMAL BEHAVIOUR [None]
  - CARDIAC DISORDER [None]
  - HIP FRACTURE [None]
  - MOBILITY DECREASED [None]
  - PAIN [None]
  - PARANOIA [None]
  - POLYMYALGIA RHEUMATICA [None]
  - THINKING ABNORMAL [None]
  - WOUND INFECTION STAPHYLOCOCCAL [None]
